FAERS Safety Report 20763314 (Version 1)
Quarter: 2022Q2

REPORT INFORMATION
  Report Type: Spontaneous
  Country: JP (occurrence: JP)
  Receive Date: 20220428
  Receipt Date: 20220428
  Transmission Date: 20220721
  Serious: Yes (Other)
  Sender: FDA-Public Use
  Company Number: JP-OTSUKA-2022_024620

PATIENT
  Age: 36 Year
  Sex: Female

DRUGS (2)
  1. ABILIFY MAINTENA [Suspect]
     Active Substance: ARIPIPRAZOLE
     Indication: Schizophrenia
     Dosage: 400MG/SHOT
     Route: 030
     Dates: start: 201706, end: 20220418
  2. AKINETON [Concomitant]
     Active Substance: BIPERIDEN HYDROCHLORIDE
     Indication: Product used for unknown indication
     Dosage: 1 MG, QD, PRESCRIBED AS NEEDED
     Route: 048
     Dates: start: 202005

REACTIONS (1)
  - Gaze palsy [Not Recovered/Not Resolved]

NARRATIVE: CASE EVENT DATE: 20200501
